FAERS Safety Report 5555350-2 (Version None)
Quarter: 2007Q4

REPORT INFORMATION
  Report Type: 
  Country: None (occurrence: None)
  Receive Date: 20071213
  Receipt Date: 20070816
  Transmission Date: 20080405
  Serious: No
  Sender: FDA-Public Use
  Company Number: US-AMGEN-KDL238647

PATIENT
  Sex: Female

DRUGS (4)
  1. ENBREL [Suspect]
     Indication: PSORIASIS
     Route: 058
     Dates: start: 20070816
  2. DIPROSTENE [Suspect]
     Dates: start: 20070701
  3. CALCIPOTRIENE [Concomitant]
     Dates: start: 20070513
  4. DOVONEX [Concomitant]
     Dates: start: 20070116, end: 20070313

REACTIONS (9)
  - ABDOMINAL PAIN [None]
  - CHEST DISCOMFORT [None]
  - DYSPNOEA [None]
  - ERUCTATION [None]
  - HEADACHE [None]
  - NASAL CONGESTION [None]
  - PHARYNGOLARYNGEAL PAIN [None]
  - POSTNASAL DRIP [None]
  - SINUSITIS [None]
